FAERS Safety Report 12485086 (Version 2)
Quarter: 2016Q2

REPORT INFORMATION
  Report Type: Spontaneous
  Country: US (occurrence: US)
  Receive Date: 20160621
  Receipt Date: 20160629
  Transmission Date: 20160815
  Serious: No
  Sender: FDA-Public Use
  Company Number: US-PFIZER INC-2016260797

PATIENT
  Sex: Male

DRUGS (3)
  1. ALDACTONE [Suspect]
     Active Substance: SPIRONOLACTONE
     Indication: SWELLING
     Dosage: UNK
  2. COLESTIPOL [Concomitant]
     Active Substance: COLESTIPOL
  3. LASIX [Suspect]
     Active Substance: FUROSEMIDE
     Indication: SWELLING
     Dosage: UNK

REACTIONS (2)
  - Peripheral swelling [Not Recovered/Not Resolved]
  - Drug effect incomplete [Unknown]
